FAERS Safety Report 5022493-1 (Version None)
Quarter: 2006Q2

REPORT INFORMATION
  Report Type: 
  Country: None (occurrence: None)
  Receive Date: 20060605
  Receipt Date: 20060524
  Transmission Date: 20061013
  Serious: Yes (Hospitalization)
  Sender: FDA-Public Use
  Company Number: 2006060527

PATIENT
  Age: 76 Year
  Sex: Male
  Weight: 59 kg

DRUGS (4)
  1. SUTENT [Suspect]
     Indication: METASTATIC RENAL CELL CARCINOMA
     Dosage: 50 MG (50 MG, 1 IN 1 D), ORAL
     Route: 048
     Dates: start: 20060425, end: 20060506
  2. PYRIDOSTIGMINE BROMIDE [Concomitant]
  3. PREDNISOLONE [Concomitant]
  4. CALCIUM CARBONATE                       (CALCIUM CARBONATE) [Concomitant]

REACTIONS (7)
  - CHILLS [None]
  - HERPES ZOSTER [None]
  - HYPONATRAEMIA [None]
  - PYREXIA [None]
  - SEPSIS [None]
  - THROMBOCYTOPENIA [None]
  - URTICARIA [None]
